FAERS Safety Report 12338822 (Version 1)
Quarter: 2016Q2

REPORT INFORMATION
  Report Type: Spontaneous
  Country: US (occurrence: US)
  Receive Date: 20160505
  Receipt Date: 20160505
  Transmission Date: 20160815
  Serious: Yes (Other)
  Sender: FDA-Public Use
  Company Number: US-BAYER-2016-082701

PATIENT
  Age: 84 Year
  Sex: Female
  Weight: 50.79 kg

DRUGS (1)
  1. BAYER WOMENS [Suspect]
     Active Substance: ASPIRIN\CALCIUM CARBONATE
     Indication: PROPHYLAXIS
     Dosage: 1 DOSE , DAILY
     Route: 048
     Dates: start: 2014

REACTIONS (2)
  - Herpes zoster [Not Recovered/Not Resolved]
  - Product use issue [None]
